FAERS Safety Report 13162748 (Version 1)
Quarter: 2017Q1

REPORT INFORMATION
  Report Type: Spontaneous
  Country: US (occurrence: US)
  Receive Date: 20170128
  Receipt Date: 20170128
  Transmission Date: 20170428
  Serious: Yes (Other)
  Sender: FDA-Public Use
  Company Number: None

PATIENT
  Age: 10 Year
  Sex: Female
  Weight: 51.3 kg

DRUGS (4)
  1. UP AND UP IBUPROFEN [Concomitant]
     Active Substance: IBUPROFEN
  2. FLINTSTONE CHEWABLE VITAMIN WITH IRON [Concomitant]
  3. TAMIFLU [Suspect]
     Active Substance: OSELTAMIVIR PHOSPHATE
     Indication: INFLUENZA
     Dosage: ?          QUANTITY:1 CAPSULE(S);?
     Route: 048
     Dates: start: 20170127, end: 20170128
  4. QVAR INHALER [Concomitant]

REACTIONS (9)
  - Hallucination [None]
  - Conversion disorder [None]
  - Amnesia [None]
  - Crying [None]
  - Speech disorder [None]
  - Restlessness [None]
  - Middle insomnia [None]
  - Screaming [None]
  - Disorientation [None]

NARRATIVE: CASE EVENT DATE: 20170128
